FAERS Safety Report 13346332 (Version 1)
Quarter: 2017Q1

REPORT INFORMATION
  Report Type: Spontaneous
  Country: PE (occurrence: PE)
  Receive Date: 20170317
  Receipt Date: 20170317
  Transmission Date: 20170428
  Serious: Yes (Other)
  Sender: FDA-Public Use
  Company Number: PE-PFIZER INC-2017013330

PATIENT
  Age: 87 Year
  Sex: Female

DRUGS (2)
  1. XALATAN [Suspect]
     Active Substance: LATANOPROST
     Indication: GLAUCOMA
     Dosage: 2 GTT( 1 DROP EACH EYE), 1X/DAY
     Route: 047
     Dates: start: 2014
  2. XALATAN [Suspect]
     Active Substance: LATANOPROST
     Indication: MACULAR DEGENERATION

REACTIONS (2)
  - Bronchial disorder [Recovered/Resolved]
  - Asthma [Recovered/Resolved]
